FAERS Safety Report 14161211 (Version 1)
Quarter: 2017Q4

REPORT INFORMATION
  Report Type: Spontaneous
  Country: IL (occurrence: IL)
  Receive Date: 20171104
  Receipt Date: 20171104
  Transmission Date: 20180321
  Serious: No
  Sender: FDA-Public Use
  Company Number: None

PATIENT
  Age: 67 Year
  Sex: Male
  Weight: 78 kg

DRUGS (2)
  1. DUODART [Concomitant]
     Active Substance: DUTASTERIDE\TAMSULOSIN
  2. CIALIS [Suspect]
     Active Substance: TADALAFIL
     Indication: ERECTILE DYSFUNCTION
     Dosage: ?          QUANTITY:1 TABLET(S);?
     Route: 048

REACTIONS (4)
  - Penis disorder [None]
  - Back pain [None]
  - Drug effect decreased [None]
  - Myalgia [None]

NARRATIVE: CASE EVENT DATE: 20170908
